FAERS Safety Report 24243211 (Version 1)
Quarter: 2024Q3

REPORT INFORMATION
  Report Type: Spontaneous
  Country: US (occurrence: US)
  Receive Date: 20240823
  Receipt Date: 20240823
  Transmission Date: 20241016
  Serious: Yes (Hospitalization)
  Sender: CHIESI
  Company Number: US-CHIESI-2024CHF05264

PATIENT
  Age: 37 Year
  Sex: Male

DRUGS (1)
  1. LAMZEDE [Suspect]
     Active Substance: VELMANASE ALFA-TYCV
     Indication: Product used for unknown indication
     Dosage: UNK, QW
     Route: 042

REACTIONS (4)
  - Decubitus ulcer [Unknown]
  - Sepsis [Unknown]
  - Osteomyelitis [Unknown]
  - Product dose omission issue [Unknown]
